FAERS Safety Report 5455843-2 (Version None)
Quarter: 2007Q3

REPORT INFORMATION
  Report Type: 
  Country: None (occurrence: None)
  Receive Date: 20070918
  Receipt Date: 20070228
  Transmission Date: 20080115
  Serious: Yes (Other)
  Sender: FDA-Public Use
  Company Number: US-ASTRAZENECA-2006UW22833

PATIENT
  Sex: Female
  Weight: 95.5 kg

DRUGS (4)
  1. SEROQUEL [Suspect]
     Dosage: 100MG TO 200MG
     Route: 048
     Dates: start: 20020506, end: 20021201
  2. RISPERDAL [Concomitant]
     Dates: start: 20001122, end: 20050307
  3. TRILAFON [Concomitant]
     Dates: start: 19990101
  4. ZYPREXA [Concomitant]
     Dosage: 10MG TO 25 MG
     Dates: start: 19991001, end: 20000901

REACTIONS (2)
  - PANCREATITIS [None]
  - TYPE 2 DIABETES MELLITUS [None]
